FAERS Safety Report 8126448-X (Version None)
Quarter: 2012Q1

REPORT INFORMATION
  Report Type: 
  Country: None (occurrence: None)
  Receive Date: 20120209
  Receipt Date: 20120206
  Transmission Date: 20120608
  Serious: Yes (Other)
  Sender: FDA-Public Use
  Company Number: US-AMGEN-USASP2012007024

PATIENT
  Age: 63 Year
  Sex: Male
  Weight: 117 kg

DRUGS (7)
  1. SPIRONOLACTONE [Concomitant]
  2. NPLATE [Suspect]
     Indication: THROMBOCYTOPENIA
     Dates: start: 20120126
  3. AMBIEN [Concomitant]
     Indication: INSOMNIA
  4. CLONAZEPAM [Concomitant]
     Indication: INSOMNIA
  5. MIRTAZAPINE [Concomitant]
     Indication: INSOMNIA
  6. FUROSEMIDE [Concomitant]
  7. PROPRANOLOL [Concomitant]
     Indication: HYPERTENSION

REACTIONS (5)
  - INSOMNIA [None]
  - FEAR OF DISEASE [None]
  - CIRCADIAN RHYTHM SLEEP DISORDER [None]
  - MENTAL IMPAIRMENT [None]
  - MOBILITY DECREASED [None]
